FAERS Safety Report 6460634-X (Version None)
Quarter: 2009Q4

REPORT INFORMATION
  Report Type: 
  Country: None (occurrence: None)
  Receive Date: 20091130
  Receipt Date: 20091124
  Transmission Date: 20100525
  Serious: Yes (Death)
  Sender: FDA-Public Use
  Company Number: JP-JNJFOC-20091103991

PATIENT
  Sex: Male
  Weight: 59 kg

DRUGS (5)
  1. ITRIZOLE [Suspect]
     Route: 042
     Dates: start: 20090608, end: 20090611
  2. ITRIZOLE [Suspect]
     Indication: FEBRILE NEUTROPENIA
     Route: 042
     Dates: start: 20090608, end: 20090611
  3. SULPERAZON [Suspect]
     Indication: PYELONEPHRITIS
     Route: 042
     Dates: start: 20090528, end: 20090531
  4. BROACT [Suspect]
     Indication: PYELONEPHRITIS
     Route: 042
     Dates: start: 20090601, end: 20090609
  5. PASIL [Suspect]
     Indication: PYELONEPHRITIS
     Route: 042
     Dates: start: 20090610, end: 20090611

REACTIONS (4)
  - HEPATIC FUNCTION ABNORMAL [None]
  - LYMPHOMA [None]
  - RENAL IMPAIRMENT [None]
  - SEPSIS [None]
